FAERS Safety Report 6274478-5 (Version None)
Quarter: 2009Q3

REPORT INFORMATION
  Report Type: 
  Country: None (occurrence: None)
  Receive Date: 20090720
  Receipt Date: 20090710
  Transmission Date: 20100115
  Serious: Yes (Other)
  Sender: FDA-Public Use
  Company Number: PHHY2009BE28453

PATIENT
  Sex: Male

DRUGS (6)
  1. ALISKIREN ALI+ [Suspect]
     Indication: HYPERTENSION
     Dosage: 150 MG
     Route: 048
     Dates: start: 20081002, end: 20081016
  2. ALISKIREN ALI+ [Suspect]
     Dosage: 300 MG
     Route: 048
     Dates: start: 20081016, end: 20090519
  3. TRITACE [Suspect]
     Dosage: 10 MG, UNK
  4. ALLOPURINOL [Concomitant]
  5. CRESTOR [Concomitant]
     Dosage: 10 MG, UNK
  6. GLURENORM [Concomitant]

REACTIONS (3)
  - HYPERKALAEMIA [None]
  - MUSCULAR WEAKNESS [None]
  - RENAL IMPAIRMENT [None]
